FAERS Safety Report 25112229 (Version 2)
Quarter: 2025Q1

REPORT INFORMATION
  Report Type: Spontaneous
  Country: US (occurrence: US)
  Receive Date: 20250324
  Receipt Date: 20250325
  Transmission Date: 20250409
  Serious: No
  Sender: PFIZER
  Company Number: US-PFIZER INC-202500058545

PATIENT
  Age: 11 Year
  Sex: Male
  Weight: 25 kg

DRUGS (4)
  1. GENOTROPIN [Suspect]
     Active Substance: SOMATROPIN
     Indication: Growth hormone deficiency
     Route: 058
  2. GENOTROPIN [Suspect]
     Active Substance: SOMATROPIN
     Indication: Short stature
  3. GENOTROPIN [Suspect]
     Active Substance: SOMATROPIN
     Indication: Weight abnormal
  4. GENOTROPIN [Suspect]
     Active Substance: SOMATROPIN
     Indication: Cardiac murmur

REACTIONS (1)
  - Device leakage [Unknown]
